FAERS Safety Report 4939714-3 (Version None)
Quarter: 2006Q1

REPORT INFORMATION
  Report Type: 
  Country: None (occurrence: None)
  Receive Date: 20060310
  Receipt Date: 20060227
  Transmission Date: 20060701
  Serious: Yes (Hospitalization)
  Sender: FDA-Public Use
  Company Number: US-MERCK-0603USA00013

PATIENT
  Age: 69 Year
  Sex: Female
  Weight: 50 kg

DRUGS (3)
  1. VIOXX [Suspect]
     Indication: ARTHRITIS
     Route: 048
     Dates: start: 20001025, end: 20020508
  2. VIOXX [Suspect]
     Route: 048
     Dates: start: 20031231, end: 20040301
  3. ASPIRIN [Concomitant]
     Route: 065

REACTIONS (2)
  - ARTHRITIS [None]
  - MYOCARDIAL INFARCTION [None]
